FAERS Safety Report 5842074-7 (Version None)
Quarter: 2008Q3

REPORT INFORMATION
  Report Type: 
  Country: None (occurrence: None)
  Receive Date: 20080812
  Receipt Date: 20080730
  Transmission Date: 20090109
  Serious: Yes (Life-Threatening, Other)
  Sender: FDA-Public Use
  Company Number: JP-ROCHE-576994

PATIENT
  Sex: Female
  Weight: 47 kg

DRUGS (12)
  1. XELODA [Suspect]
     Indication: BREAST CANCER METASTATIC
     Dosage: DRUG REPORTED AS XELODA 300
     Route: 048
     Dates: start: 20080417
  2. THYRADIN [Concomitant]
     Route: 048
  3. KALLIKREIN [Concomitant]
     Dosage: DOSE: 60 UT
     Route: 048
  4. VANCOMYCIN HCL [Concomitant]
     Dosage: DRUG: VANCOMIN (MECOBALAMIN)
     Route: 048
  5. GOODMIN [Concomitant]
     Route: 048
     Dates: start: 20080201
  6. CELCOX [Concomitant]
     Route: 048
     Dates: start: 20080201
  7. DEPAS [Concomitant]
     Route: 048
     Dates: start: 20080201
  8. DECADRON SRC [Concomitant]
     Route: 048
     Dates: start: 20080401
  9. PYRIDOXAL CALCIUM PHOSPHATE [Concomitant]
     Dosage: DRUG REPORTED AS ADEROXAL (PYRIDOXAL CALCIUM PHOSPHATE)
     Route: 048
     Dates: start: 20080417
  10. MUCOSTA [Concomitant]
     Route: 048
     Dates: start: 20080201
  11. TAKEPRON [Concomitant]
     Route: 048
     Dates: start: 20080707
  12. LASIX [Concomitant]
     Route: 048
     Dates: start: 20080707

REACTIONS (5)
  - DISSEMINATED INTRAVASCULAR COAGULATION [None]
  - HEPATIC FUNCTION ABNORMAL [None]
  - PLATELET COUNT DECREASED [None]
  - PYREXIA [None]
  - RENAL IMPAIRMENT [None]
